FAERS Safety Report 6597822-8 (Version None)
Quarter: 2010Q1

REPORT INFORMATION
  Report Type: 
  Country: None (occurrence: None)
  Receive Date: 20100216
  Receipt Date: 20100205
  Transmission Date: 20100710
  Serious: Yes (Hospitalization)
  Sender: FDA-Public Use
  Company Number: 94915

PATIENT
  Age: 40 Year
  Sex: Female

DRUGS (1)
  1. AZATHIOPRINE SODIUM [Suspect]
     Indication: COLITIS ULCERATIVE
     Dosage: 2MG/KG

REACTIONS (2)
  - BONE MARROW FAILURE [None]
  - PNEUMONITIS [None]
